FAERS Safety Report 6667015-4 (Version None)
Quarter: 2010Q2

REPORT INFORMATION
  Report Type: 
  Country: None (occurrence: None)
  Receive Date: 20100405
  Receipt Date: 20100326
  Transmission Date: 20101027
  Serious: Yes (Hospitalization)
  Sender: FDA-Public Use
  Company Number: US-ALEXION-A201000246

PATIENT
  Sex: Male

DRUGS (7)
  1. SOLIRIS [Suspect]
     Indication: PAROXYSMAL NOCTURNAL HAEMOGLOBINURIA
     Dosage: UNK MG, UNK
     Route: 042
     Dates: start: 20090513
  2. SOLIRIS [Suspect]
     Dosage: 900 MG, Q2W
     Route: 042
  3. SOLIRIS [Suspect]
     Dosage: 600 MG, QW X4
     Route: 042
     Dates: start: 20100310
  4. PREDNISONE TAB [Concomitant]
     Dosage: 60 MG, QD
     Route: 048
  5. NORVASC [Concomitant]
     Dosage: 10 MG, QD
     Route: 048
  6. PREVACID [Concomitant]
     Dosage: 20 MG, QD
     Route: 048
  7. TANSULOSINA                        /01280301/ [Concomitant]
     Dosage: 0.4 MG, QD
     Route: 048

REACTIONS (5)
  - ABDOMINAL PAIN [None]
  - DEHYDRATION [None]
  - DRUG DOSE OMISSION [None]
  - FATIGUE [None]
  - HAEMOLYSIS [None]
